FAERS Safety Report 14914617 (Version 1)
Quarter: 2018Q2

REPORT INFORMATION
  Report Type: Spontaneous
  Country: US (occurrence: US)
  Receive Date: 20180501
  Receipt Date: 20180501
  Transmission Date: 20180711
  Serious: Yes (Life-Threatening, Hospitalization, Other)
  Sender: FDA-Public Use
  Company Number: None

PATIENT
  Age: 64 Year
  Sex: Male
  Weight: 112.9 kg

DRUGS (7)
  1. TEMAZEPAM 30MG DAILY AT BEDTIME [Concomitant]
     Active Substance: TEMAZEPAM
  2. LISINOPRIL. [Suspect]
     Active Substance: LISINOPRIL
     Indication: HYPERTENSION
     Route: 048
     Dates: start: 20180301, end: 20180408
  3. FAMOTIDINE 20MG ORALLY DAILY [Concomitant]
  4. FEXOFENADINE 180MG DAILY [Concomitant]
  5. CITALOPRAM 10MG DAILY [Concomitant]
  6. DOCUSATE-SENNA 50MG-8.6MG, 1 TAB DAILY [Concomitant]
  7. PHENYTOIN 187.5MG ORALLY BID [Concomitant]

REACTIONS (1)
  - Angioedema [None]

NARRATIVE: CASE EVENT DATE: 20180408
